FAERS Safety Report 8200974 (Version 3)
Quarter: 2014Q4

REPORT INFORMATION
  Report Type: Spontaneous
  Country: CL (occurrence: CL)
  Receive Date: 20111026
  Receipt Date: 20141222
  Transmission Date: 20150529
  Serious: Yes (Other)
  Sender: FDA-Public Use
  Company Number: CL-PFIZER INC-2011252258

PATIENT
  Age: 67 Year
  Sex: Male

DRUGS (5)
  1. AZULFIDINE [Suspect]
     Active Substance: SULFASALAZINE
     Dosage: 500 MG, 2X/DAY
     Route: 048
     Dates: start: 201110, end: 20111019
  2. AZULFIDINE [Suspect]
     Active Substance: SULFASALAZINE
     Indication: SPINAL CORD DISORDER
     Dosage: 500 MG, 1X/DAY
     Route: 048
     Dates: start: 20111005, end: 201110
  3. URSOFALK [Concomitant]
     Active Substance: URSODIOL
     Indication: LIVER DISORDER
     Dosage: 250MG/DAY
     Dates: start: 2010
  4. TRAMADOL [Concomitant]
     Active Substance: TRAMADOL
     Indication: PAIN
     Dosage: 25 GTT, 2X/DAY
     Dates: start: 2011
  5. AZULFIDINE [Suspect]
     Active Substance: SULFASALAZINE
     Dosage: 500 MG, 1X/DAY

REACTIONS (2)
  - Liver disorder [Not Recovered/Not Resolved]
  - Abdominal pain [Recovering/Resolving]

NARRATIVE: CASE EVENT DATE: 20111015
